FAERS Safety Report 22263671 (Version 1)
Quarter: 2023Q2

REPORT INFORMATION
  Report Type: Spontaneous
  Country: US (occurrence: US)
  Receive Date: 20230428
  Receipt Date: 20230428
  Transmission Date: 20230722
  Serious: No
  Sender: FDA-Public Use
  Company Number: US-TARO PHARMACEUTICALS USA INC.-2023TAR00194

PATIENT

DRUGS (1)
  1. FLUOROURACIL [Suspect]
     Active Substance: FLUOROURACIL
     Indication: Basal cell carcinoma
     Dosage: UNK, BID, APPLIED ON TOP AND BACK OF HEAD AND CROWN OF HEAD
     Route: 061
     Dates: start: 20230203, end: 20230206

REACTIONS (6)
  - Paraesthesia [Not Recovered/Not Resolved]
  - Headache [Unknown]
  - Scab [Not Recovered/Not Resolved]
  - Off label use [Unknown]
  - Blister [Unknown]
  - Pruritus [Unknown]

NARRATIVE: CASE EVENT DATE: 20230203
